FAERS Safety Report 13208621 (Version 3)
Quarter: 2017Q2

REPORT INFORMATION
  Report Type: Spontaneous
  Country: GB (occurrence: GB)
  Receive Date: 20170209
  Receipt Date: 20170403
  Transmission Date: 20170830
  Serious: Yes (Hospitalization, Other)
  Sender: FDA-Public Use
  Company Number: GB-MYLANLABS-2017M1007892

PATIENT

DRUGS (4)
  1. CLOZARIL [Suspect]
     Active Substance: CLOZAPINE
     Dosage: 325 MG, PM
     Route: 048
     Dates: start: 20050612
  2. VENLAFAXINE [Concomitant]
     Active Substance: VENLAFAXINE HYDROCHLORIDE
     Indication: PRODUCT USED FOR UNKNOWN INDICATION
     Dosage: 75 MG, AM
     Route: 048
  3. CLOZARIL [Suspect]
     Active Substance: CLOZAPINE
     Indication: SCHIZOPHRENIA
     Dosage: 25 MG, AM
     Route: 048
     Dates: start: 20050612
  4. SENNA [Concomitant]
     Active Substance: SENNA LEAF\SENNOSIDES\SENNOSIDES A AND B
     Indication: PRODUCT USED FOR UNKNOWN INDICATION
     Dosage: 15 MG, PM
     Route: 048

REACTIONS (12)
  - Fatigue [Not Recovered/Not Resolved]
  - Condition aggravated [Unknown]
  - Schizophrenia [Unknown]
  - Brain neoplasm [Recovering/Resolving]
  - Depressed mood [Unknown]
  - General physical condition abnormal [Unknown]
  - Back pain [Unknown]
  - Treatment noncompliance [Unknown]
  - Suicidal ideation [Recovered/Resolved]
  - Social problem [Unknown]
  - Lethargy [Unknown]
  - Wrong technique in product usage process [Unknown]
